FAERS Safety Report 8462168-X (Version None)
Quarter: 2012Q2

REPORT INFORMATION
  Report Type: 
  Country: None (occurrence: None)
  Receive Date: 20120625
  Receipt Date: 20120613
  Transmission Date: 20120825
  Serious: No
  Sender: FDA-Public Use
  Company Number: JP-NOVOPROD-352242

PATIENT
  Age: 11 Year
  Sex: Female
  Weight: 29 kg

DRUGS (1)
  1. NORDITROPIN [Suspect]
     Indication: TURNER'S SYNDROME
     Dosage: UNK
     Route: 058
     Dates: start: 19920101, end: 19950101

REACTIONS (2)
  - SCOLIOSIS [None]
  - CONDITION AGGRAVATED [None]
